FAERS Safety Report 16663085 (Version 1)
Quarter: 2019Q3

REPORT INFORMATION
  Report Type: Report from Study
  Country: US (occurrence: US)
  Receive Date: 20190802
  Receipt Date: 20190802
  Transmission Date: 20191004
  Serious: No
  Sender: FDA-Public Use
  Company Number: US-EXELIXIS-CABO-19019744

PATIENT
  Age: 79 Year
  Sex: Male

DRUGS (1)
  1. CABOMETYX [Suspect]
     Active Substance: CABOZANTINIB S-MALATE
     Indication: HEPATIC CANCER
     Dosage: 60 MG, UNK (WITH FOOD)
     Dates: start: 20190316

REACTIONS (6)
  - Mouth ulceration [Recovered/Resolved]
  - Blood pressure increased [Recovering/Resolving]
  - Pain in extremity [Unknown]
  - Product administration error [Unknown]
  - Fatigue [Not Recovered/Not Resolved]
  - Purpura [Unknown]

NARRATIVE: CASE EVENT DATE: 201903
